FAERS Safety Report 6566985-2 (Version None)
Quarter: 2010Q1

REPORT INFORMATION
  Report Type: 
  Country: None (occurrence: None)
  Receive Date: 20100202
  Receipt Date: 20100128
  Transmission Date: 20100710
  Serious: Yes (Hospitalization)
  Sender: FDA-Public Use
  Company Number: BE-MERCK-1001BEL00009

PATIENT
  Age: 70 Year
  Sex: Female

DRUGS (5)
  1. ZETIA [Suspect]
     Indication: HYPERCHOLESTEROLAEMIA
     Route: 048
     Dates: start: 20050101, end: 20090101
  2. ZETIA [Suspect]
     Route: 048
     Dates: start: 20090201
  3. SERTRALINE HYDROCHLORIDE [Concomitant]
     Indication: DEPRESSION
     Route: 048
  4. HALOPERIDOL [Concomitant]
     Route: 048
  5. ETILEFRINE HYDROCHLORIDE [Concomitant]
     Route: 048

REACTIONS (6)
  - AGGRESSION [None]
  - ALOPECIA [None]
  - AMNESIA [None]
  - CEREBRAL HAEMORRHAGE [None]
  - COMA [None]
  - SKULL FRACTURE [None]
